FAERS Safety Report 5253337-0 (Version None)
Quarter: 2007Q1

REPORT INFORMATION
  Report Type: 
  Country: None (occurrence: None)
  Receive Date: 20070301
  Receipt Date: 20070220
  Transmission Date: 20070707
  Serious: Yes (Hospitalization)
  Sender: FDA-Public Use
  Company Number: IE-ROCHE-483646

PATIENT
  Age: 88 Year
  Sex: Female

DRUGS (2)
  1. BONVIVA [Suspect]
     Indication: DRUG USE FOR UNKNOWN INDICATION
     Dosage: THE PATIENT HAD FIVE DOSES OF IBANDRONIC ACID.
     Route: 065
     Dates: end: 20070212
  2. PROTEIN [Concomitant]
     Dosage: DRUG REPORTED AS KETOPROTEIN.

REACTIONS (1)
  - GASTRIC ULCER PERFORATION [None]
